FAERS Safety Report 8376455-7 (Version None)
Quarter: 2012Q2

REPORT INFORMATION
  Report Type: 
  Country: None (occurrence: None)
  Receive Date: 20120517
  Receipt Date: 20120510
  Transmission Date: 20120825
  Serious: Yes (Other)
  Sender: FDA-Public Use
  Company Number: TPA2011A05697

PATIENT
  Age: 59 Year
  Sex: Male
  Weight: 93.8946 kg

DRUGS (7)
  1. ACCUPRIL [Concomitant]
  2. LOPERAMIDE [Concomitant]
  3. LIPITOR [Concomitant]
  4. FUROSEMIDE [Concomitant]
  5. ACTOS [Suspect]
     Dosage: 15 MG, 1 IN 1 D, PER ORAL
     Route: 048
     Dates: start: 20070703
  6. CRESTOR [Concomitant]
  7. MEDROL DOSEPAK (METHYLPREDNISOLONE) [Concomitant]

REACTIONS (7)
  - VIITH NERVE PARALYSIS [None]
  - SOCIAL PROBLEM [None]
  - GONORRHOEA [None]
  - EPIDIDYMITIS [None]
  - HAEMORRHAGE [None]
  - CHLAMYDIAL INFECTION [None]
  - CEREBROVASCULAR ACCIDENT [None]
